FAERS Safety Report 8614928-X (Version None)
Quarter: 2012Q3

REPORT INFORMATION
  Report Type: 
  Country: None (occurrence: None)
  Receive Date: 20120823
  Receipt Date: 20120813
  Transmission Date: 20120928
  Serious: Yes (Death)
  Sender: FDA-Public Use
  Company Number: US-SANOFI-AVENTIS-2012SA058444

PATIENT
  Age: 44 Year
  Sex: Male

DRUGS (1)
  1. RILUTEK [Suspect]
     Route: 065

REACTIONS (1)
  - DEATH [None]
